FAERS Safety Report 6160277-1 (Version None)
Quarter: 2009Q2

REPORT INFORMATION
  Report Type: 
  Country: None (occurrence: None)
  Receive Date: 20090416
  Receipt Date: 20090416
  Transmission Date: 20091009
  Serious: Yes (Life-Threatening, Other)
  Sender: FDA-Public Use
  Company Number: None

PATIENT
  Sex: Male
  Weight: 90.7194 kg

DRUGS (1)
  1. LISINOPRIL [Suspect]
     Indication: HYPERTENSION
     Dosage: ONE 40MG PILL ONE PER DAY PO
     Route: 048
     Dates: start: 20090413, end: 20090414

REACTIONS (8)
  - BLOOD PRESSURE INCREASED [None]
  - CHEST PAIN [None]
  - DIZZINESS [None]
  - HEART RATE INCREASED [None]
  - HYPOAESTHESIA [None]
  - PAIN IN EXTREMITY [None]
  - PRODUCT QUALITY ISSUE [None]
  - PRODUCT SUBSTITUTION ISSUE [None]
